FAERS Safety Report 14256404 (Version 1)
Quarter: 2017Q4

REPORT INFORMATION
  Report Type: Spontaneous
  Country: US (occurrence: US)
  Receive Date: 20171206
  Receipt Date: 20171206
  Transmission Date: 20180321
  Serious: Yes (Other)
  Sender: FDA-Public Use
  Company Number: US-SA-2017SA243150

PATIENT
  Sex: Male

DRUGS (2)
  1. LANTUS SOLOSTAR [Suspect]
     Active Substance: INSULIN GLARGINE
     Indication: TYPE 2 DIABETES MELLITUS
     Dosage: DOSE:34 UNIT(S)
     Route: 051
     Dates: start: 2007
  2. SOLOSTAR [Suspect]
     Active Substance: DEVICE
     Indication: TYPE 2 DIABETES MELLITUS
     Dates: start: 2007

REACTIONS (2)
  - Leg amputation [Unknown]
  - Seizure [Unknown]
